FAERS Safety Report 4496168-1 (Version None)
Quarter: 2004Q4

REPORT INFORMATION
  Report Type: 
  Country: None (occurrence: None)
  Receive Date: 20041108
  Receipt Date: 20041108
  Transmission Date: 20050328
  Serious: Yes (Hospitalization)
  Sender: FDA-Public Use
  Company Number: None

PATIENT
  Age: 54 Year
  Sex: Male
  Weight: 86.1834 kg

DRUGS (3)
  1. CISPLATIN [Suspect]
     Indication: ANAL CANCER
     Dosage: 37.5 MG/M2 IV
     Route: 042
     Dates: start: 20041019
  2. FLUOROURACIL [Suspect]
     Indication: ANAL CANCER
     Dosage: 1000 MG/M2 OI IV
     Route: 042
     Dates: start: 20041019, end: 20041023
  3. RADIATION THERAPY [Concomitant]

REACTIONS (4)
  - CEREBROVASCULAR ACCIDENT [None]
  - CONFUSIONAL STATE [None]
  - DYSARTHRIA [None]
  - LETHARGY [None]
